FAERS Safety Report 4736053-0 (Version None)
Quarter: 2005Q3

REPORT INFORMATION
  Report Type: 
  Country: None (occurrence: None)
  Receive Date: 20050721
  Receipt Date: 20050521
  Transmission Date: 20060218
  Serious: No
  Sender: FDA-Public Use
  Company Number: 2005SP000973

PATIENT
  Sex: Female

DRUGS (2)
  1. LUNESTA [Suspect]
     Indication: INSOMNIA
     Dosage: 2 MG;HS;ORAL;  3 MG;HS;ORAL
     Route: 048
     Dates: start: 20050501
  2. LUNESTA [Suspect]
     Indication: INSOMNIA
     Dosage: 2 MG;HS;ORAL;  3 MG;HS;ORAL
     Route: 048
     Dates: start: 20050501

REACTIONS (2)
  - DYSGEUSIA [None]
  - INITIAL INSOMNIA [None]
